FAERS Safety Report 15138113 (Version 2)
Quarter: 2020Q3

REPORT INFORMATION
  Report Type: Spontaneous
  Country: SG (occurrence: SG)
  Receive Date: 20180713
  Receipt Date: 20180726
  Transmission Date: 20201104
  Serious: Yes (Other)
  Sender: FDA-Public Use
  Company Number: SG-CONCORDIA PHARMACEUTICALS INC.-GSH201807-002365

PATIENT
  Sex: Female

DRUGS (11)
  1. HYDROXYCHLOROQUINE [Suspect]
     Active Substance: HYDROXYCHLOROQUINE
     Indication: BURKHOLDERIA CEPACIA COMPLEX INFECTION
  2. CEFTAZIDIME. [Suspect]
     Active Substance: CEFTAZIDIME
  3. GENTAMYCIN [Suspect]
     Active Substance: GENTAMICIN
     Dosage: NEBULIZED
  4. METHYLPREDNISOLONE. [Suspect]
     Active Substance: METHYLPREDNISOLONE
     Dosage: DOSE DECREASED
     Route: 042
  5. METHYLPREDNISOLONE. [Suspect]
     Active Substance: METHYLPREDNISOLONE
     Indication: BURKHOLDERIA CEPACIA COMPLEX INFECTION
     Route: 042
  6. CYCLOSPORIN [Suspect]
     Active Substance: CYCLOSPORINE
  7. VORICONAZOLE. [Concomitant]
     Active Substance: VORICONAZOLE
     Indication: CANDIDA INFECTION
  8. PREDNISOLONE. [Suspect]
     Active Substance: PREDNISOLONE
     Indication: BURKHOLDERIA CEPACIA COMPLEX INFECTION
     Route: 048
  9. PIPERACILLIN/TAZOCIN [Suspect]
     Active Substance: PIPERACILLIN SODIUM\TAZOBACTAM SODIUM
  10. MEROPENEM. [Suspect]
     Active Substance: MEROPENEM
     Dosage: NEBULIZED
  11. AMIKACIN. [Suspect]
     Active Substance: AMIKACIN
     Dosage: NEBULIZED

REACTIONS (2)
  - Condition aggravated [Unknown]
  - Drug ineffective [Unknown]
